FAERS Safety Report 7449761-8 (Version None)
Quarter: 2011Q2

REPORT INFORMATION
  Report Type: 
  Country: None (occurrence: None)
  Receive Date: 20110502
  Receipt Date: 20110419
  Transmission Date: 20111010
  Serious: Yes (Other)
  Sender: FDA-Public Use
  Company Number: US-RANBAXY-2011US-43956

PATIENT
  Age: 67 Year
  Sex: Female

DRUGS (6)
  1. CLONAZEPAM [Concomitant]
     Indication: PRODUCT USED FOR UNKNOWN INDICATION
     Dosage: UNK
     Route: 065
  2. OXCARBAZEPINE [Interacting]
     Dosage: 900MG/DAY,UNK
     Route: 065
  3. TOPIRAMATE [Concomitant]
     Indication: PRODUCT USED FOR UNKNOWN INDICATION
     Route: 065
  4. OXCARBAZEPINE [Suspect]
     Indication: BIPOLAR I DISORDER
     Dosage: 150 MG, BID
     Route: 065
  5. PHENYTOIN [Interacting]
     Indication: PRODUCT USED FOR UNKNOWN INDICATION
     Dosage: 200MG IN MORN + 260MG IN EVE/DAY, UNK.
     Route: 065
  6. QUETIAPINE [Concomitant]
     Indication: PRODUCT USED FOR UNKNOWN INDICATION
     Route: 065

REACTIONS (4)
  - DRUG LEVEL INCREASED [None]
  - DRUG INTERACTION [None]
  - ATAXIA [None]
  - TOXICITY TO VARIOUS AGENTS [None]
